FAERS Safety Report 20486950 (Version 1)
Quarter: 2022Q1

REPORT INFORMATION
  Report Type: Spontaneous
  Country: US (occurrence: US)
  Receive Date: 20220217
  Receipt Date: 20220217
  Transmission Date: 20220423
  Serious: Yes (Hospitalization, Other)
  Sender: FDA-Public Use
  Company Number: US-PFIZER INC-202200206283

PATIENT
  Age: 16 Year
  Sex: Male
  Weight: 81.65 kg

DRUGS (1)
  1. GENOTROPIN [Suspect]
     Active Substance: SOMATROPIN
     Indication: Growth hormone deficiency
     Dosage: 1.7 MG (INJECTION 6 DAYS A WEEK )

REACTIONS (1)
  - Seizure [Unknown]
